FAERS Safety Report 6825217-8 (Version None)
Quarter: 2010Q3

REPORT INFORMATION
  Report Type: 
  Country: None (occurrence: None)
  Receive Date: 20100708
  Receipt Date: 20061208
  Transmission Date: 20110219
  Serious: No
  Sender: FDA-Public Use
  Company Number: US-PFIZER INC-2006148891

PATIENT
  Sex: Female
  Weight: 63.5 kg

DRUGS (4)
  1. CHANTIX [Suspect]
     Indication: SMOKING CESSATION THERAPY
     Dates: start: 20061122, end: 20061129
  2. CELEBREX [Concomitant]
     Indication: OSTEOARTHRITIS
  3. LUNESTA [Concomitant]
     Indication: INSOMNIA
  4. INDAPAMIDE [Concomitant]
     Indication: OEDEMA PERIPHERAL

REACTIONS (3)
  - AXILLARY MASS [None]
  - INFECTION [None]
  - SKIN DISCOLOURATION [None]
